FAERS Safety Report 6517273-1 (Version None)
Quarter: 2009Q4

REPORT INFORMATION
  Report Type: 
  Country: None (occurrence: None)
  Receive Date: 20091223
  Receipt Date: 20070702
  Transmission Date: 20100525
  Serious: Yes (Other)
  Sender: FDA-Public Use
  Company Number: DE-GENENTECH-243874

PATIENT

DRUGS (2)
  1. LUCENTIS [Suspect]
     Indication: DRUG USE FOR UNKNOWN INDICATION
     Dosage: UNK, SINGLE
     Dates: start: 20070601, end: 20070601
  2. LUCENTIS [Suspect]
     Route: 031

REACTIONS (1)
  - PYREXIA [None]
